FAERS Safety Report 7991094-5 (Version None)
Quarter: 2011Q4

REPORT INFORMATION
  Report Type: 
  Country: None (occurrence: None)
  Receive Date: 20111219
  Receipt Date: 20111114
  Transmission Date: 20120403
  Serious: No
  Sender: FDA-Public Use
  Company Number: US-B.I. PHARMACEUTICALS,INC./RIDGEFIELD-2011-BP-26165BP

PATIENT
  Sex: Female

DRUGS (4)
  1. ESTRACE [Concomitant]
  2. PRADAXA [Suspect]
     Indication: ATRIAL FIBRILLATION
     Dosage: 300 MG
     Route: 048
     Dates: start: 20111031
  3. METOPROLOL [Concomitant]
  4. VITAMIN TAB [Concomitant]

REACTIONS (2)
  - CHEST DISCOMFORT [None]
  - CHEST PAIN [None]
